FAERS Safety Report 20883191 (Version 1)
Quarter: 2022Q2

REPORT INFORMATION
  Report Type: Spontaneous
  Country: US (occurrence: US)
  Receive Date: 20220527
  Receipt Date: 20220527
  Transmission Date: 20220721
  Serious: No
  Sender: FDA-Public Use
  Company Number: US-GSKCCFUS-Case-01383851_AE-79918

PATIENT
  Age: 77 Year
  Sex: Female

DRUGS (1)
  1. TRELEGY ELLIPTA [Suspect]
     Active Substance: FLUTICASONE FUROATE\UMECLIDINIUM BROMIDE\VILANTEROL TRIFENATATE
     Indication: Product used for unknown indication
     Dosage: UNK ,100/62.5/25 MCG
     Dates: start: 20220301

REACTIONS (7)
  - Dysphonia [Unknown]
  - Throat irritation [Unknown]
  - Ocular hyperaemia [Recovering/Resolving]
  - Hunger [Unknown]
  - Cough [Unknown]
  - Oropharyngeal discomfort [Unknown]
  - Dyspnoea [Unknown]

NARRATIVE: CASE EVENT DATE: 20220301
